FAERS Safety Report 15429463 (Version 3)
Quarter: 2018Q4

REPORT INFORMATION
  Report Type: Report from Study
  Country: DE (occurrence: DE)
  Receive Date: 20180926
  Receipt Date: 20181003
  Transmission Date: 20190204
  Serious: Yes (Other)
  Sender: FDA-Public Use
  Company Number: DE-PFIZER INC-2018384966

PATIENT
  Age: 67 Year
  Sex: Male
  Weight: 99 kg

DRUGS (16)
  1. TORASEMID [Suspect]
     Active Substance: TORSEMIDE
     Indication: CARDIAC FAILURE CHRONIC
     Dosage: UNK
     Route: 065
  2. MACROGOL [Concomitant]
     Active Substance: POLYETHYLENE GLYCOLS
     Dosage: UNK
  3. TILIDIN [Concomitant]
     Active Substance: NALOXONE HYDROCHLORIDE\TILIDINE HYDROCHLORIDE
     Dosage: UNK
  4. RAMIPRIL. [Suspect]
     Active Substance: RAMIPRIL
     Dosage: 5 MG, DAILY
     Route: 048
  5. SPIRONOLACTON [Concomitant]
     Active Substance: SPIRONOLACTONE
     Dosage: UNK
  6. PREDNIHEXAL [Concomitant]
     Active Substance: PREDNISOLONE ACETATE
     Dosage: UNK
  7. FERROSANOL [Concomitant]
     Active Substance: FERROUS GLUCONATE
     Dosage: UNK
  8. BISOPROLOL 1A PHARMA [Suspect]
     Active Substance: BISOPROLOL
     Dosage: 5 MG, DAILY
     Route: 048
  9. SPIRIVA [Concomitant]
     Active Substance: TIOTROPIUM BROMIDE MONOHYDRATE
     Dosage: UNK
  10. L-THYROXIN [LEVOTHYROXINE SODIUM] [Concomitant]
     Dosage: UNK
  11. NOVAMINSULFON [Concomitant]
     Active Substance: METAMIZOLE
     Dosage: UNK
  12. LAXOBERAL [Concomitant]
     Active Substance: SODIUM PICOSULFATE
     Dosage: UNK
  13. GABAPENTIN. [Concomitant]
     Active Substance: GABAPENTIN
     Dosage: UNK
  14. ASPIRIN. [Concomitant]
     Active Substance: ASPIRIN
     Dosage: UNK
  15. SIMVASTATIN. [Concomitant]
     Active Substance: SIMVASTATIN
     Dosage: UNK
  16. PANTOPRAZOL [PANTOPRAZOLE] [Concomitant]
     Dosage: UNK

REACTIONS (9)
  - Dyschezia [Unknown]
  - Abnormal faeces [Unknown]
  - Pulmonary oedema [Unknown]
  - Cough [Not Recovered/Not Resolved]
  - Weight fluctuation [Not Recovered/Not Resolved]
  - Nasopharyngitis [Recovering/Resolving]
  - Cardiac disorder [Unknown]
  - Pollakiuria [Not Recovered/Not Resolved]
  - Myocardial infarction [Unknown]

NARRATIVE: CASE EVENT DATE: 201701
